FAERS Safety Report 10407510 (Version 1)
Quarter: 2014Q2

REPORT INFORMATION
  Report Type: Spontaneous
  Country: US (occurrence: None)
  Receive Date: 20140514
  Receipt Date: 20140514
  Transmission Date: 20141212
  Serious: Yes (Hospitalization)
  Sender: FDA-Public Use
  Company Number: 100041U

PATIENT
  Age: 21 Year
  Sex: Male
  Weight: 65.8 kg

DRUGS (5)
  1. CIMZIA [Suspect]
     Indication: CROHN^S DISEASE
     Dates: start: 20111102, end: 201512
  2. ENTOCORT [Concomitant]
  3. INEXIUM [Concomitant]
  4. FOLIC ACID [Concomitant]
  5. IRON [Concomitant]

REACTIONS (3)
  - Crohn^s disease [None]
  - Intestinal stenosis [None]
  - Inappropriate schedule of drug administration [None]
